FAERS Safety Report 23918044 (Version 5)
Quarter: 2024Q3

REPORT INFORMATION
  Report Type: Spontaneous
  Country: US (occurrence: US)
  Receive Date: 20240530
  Receipt Date: 20240905
  Transmission Date: 20241016
  Serious: No
  Sender: SANOFI AVENTIS
  Company Number: US-SA-SAC20240524000139

PATIENT
  Age: 68 Year
  Sex: Female

DRUGS (8)
  1. DUPIXENT [Suspect]
     Active Substance: DUPILUMAB
     Indication: Neurodermatitis
     Dosage: 300 MG, QOW
     Route: 058
     Dates: start: 202311
  2. ALPRAZOLAM [Concomitant]
     Active Substance: ALPRAZOLAM
  3. GABAPENTIN [Concomitant]
     Active Substance: GABAPENTIN
  4. LISINOPRIL [Concomitant]
     Active Substance: LISINOPRIL
  5. OMEPRAZOLE [Concomitant]
     Active Substance: OMEPRAZOLE
  6. REXULTI [Concomitant]
     Active Substance: BREXPIPRAZOLE
  7. VENLAFAXINE [Concomitant]
     Active Substance: VENLAFAXINE HYDROCHLORIDE
  8. VITAMIN D NOS [Concomitant]
     Active Substance: CHOLECALCIFEROL\ERGOCALCIFEROL

REACTIONS (13)
  - Dry mouth [Unknown]
  - Decreased appetite [Unknown]
  - Abdominal pain upper [Unknown]
  - Dandruff [Unknown]
  - Dry skin [Unknown]
  - Sensation of foreign body [Unknown]
  - Skin exfoliation [Unknown]
  - Eye pruritus [Not Recovered/Not Resolved]
  - Dry eye [Unknown]
  - Eye irritation [Unknown]
  - Pruritus [Unknown]
  - Product dose omission issue [Unknown]
  - Therapeutic product effect incomplete [Unknown]

NARRATIVE: CASE EVENT DATE: 20240201
